FAERS Safety Report 5698442-X (Version None)
Quarter: 2008Q2

REPORT INFORMATION
  Report Type: 
  Country: None (occurrence: None)
  Receive Date: 20080408
  Receipt Date: 20060627
  Transmission Date: 20081010
  Serious: Yes (Other)
  Sender: FDA-Public Use
  Company Number: US-BAYER-US-2005-026248

PATIENT
  Age: 61 Year
  Sex: Female
  Weight: 59 kg

DRUGS (14)
  1. CLIMARA [Suspect]
     Indication: HORMONE REPLACEMENT THERAPY
     Route: 062
     Dates: start: 19961101, end: 19970401
  2. ESTRADERM [Suspect]
     Indication: HORMONE REPLACEMENT THERAPY
     Route: 062
     Dates: start: 19850101, end: 19970501
  3. MPA [Suspect]
     Indication: HORMONE REPLACEMENT THERAPY
     Dates: start: 19850101, end: 19970401
  4. PREMPRO [Suspect]
     Indication: HORMONE REPLACEMENT THERAPY
     Dates: start: 19970501, end: 20011201
  5. PROVERA [Suspect]
     Indication: HORMONE REPLACEMENT THERAPY
     Dates: start: 19850101, end: 19970401
  6. ASPIRIN [Concomitant]
     Dates: start: 20050801
  7. ATENOLOL [Concomitant]
  8. VITAMIN D [Concomitant]
     Dates: start: 20020101
  9. PRILOSEC [Concomitant]
  10. CLARITIN [Concomitant]
  11. FLONASE [Concomitant]
  12. DUONEB [Concomitant]
     Dates: start: 20050101
  13. ALBUTEROL [Concomitant]
     Indication: CHRONIC OBSTRUCTIVE PULMONARY DISEASE
  14. DIAZEPAM [Concomitant]

REACTIONS (3)
  - BREAST CANCER FEMALE [None]
  - LYMPHOEDEMA [None]
  - NERVE INJURY [None]
